FAERS Safety Report 6258716-0 (Version None)
Quarter: 2009Q3

REPORT INFORMATION
  Report Type: 
  Country: None (occurrence: None)
  Receive Date: 20090707
  Receipt Date: 20090629
  Transmission Date: 20100115
  Serious: Yes (Other)
  Sender: FDA-Public Use
  Company Number: A0795554A

PATIENT
  Sex: Female
  Weight: 0.9 kg

DRUGS (3)
  1. RETROVIR [Suspect]
     Indication: ANTIVIRAL TREATMENT
     Dosage: 400MG PER DAY
     Dates: start: 19890819
  2. KETOCONAZOLE [Concomitant]
  3. ZOVIRAX [Concomitant]

REACTIONS (6)
  - ANAEMIA [None]
  - CONGENITAL CYTOMEGALOVIRUS INFECTION [None]
  - DRUG EXPOSURE DURING PREGNANCY [None]
  - HIV TEST POSITIVE [None]
  - PREMATURE BABY [None]
  - THROMBOCYTOPENIA [None]
